FAERS Safety Report 4561506-8 (Version None)
Quarter: 2005Q1

REPORT INFORMATION
  Report Type: 
  Country: None (occurrence: None)
  Receive Date: 20050121
  Receipt Date: 20050110
  Transmission Date: 20050727
  Serious: Yes (Hospitalization)
  Sender: FDA-Public Use
  Company Number: 211719

PATIENT

DRUGS (1)
  1. XOLAIR [Suspect]

REACTIONS (1)
  - MENINGITIS VIRAL [None]
